FAERS Safety Report 8399727-9 (Version None)
Quarter: 2012Q2

REPORT INFORMATION
  Report Type: 
  Country: None (occurrence: None)
  Receive Date: 20120323
  Receipt Date: 20110912
  Transmission Date: 20120825
  Serious: Yes (Other)
  Sender: FDA-Public Use
  Company Number: 163-21880-11072495

PATIENT
  Age: 72 Year
  Sex: Female
  Weight: 75.9 kg

DRUGS (1)
  1. REVLIMID [Suspect]
     Indication: MULTIPLE MYELOMA
     Dosage: 25 MG, DAILY FOR 14 DAYS, PO
     Route: 048
     Dates: start: 20110705

REACTIONS (5)
  - VOMITING [None]
  - NAUSEA [None]
  - DIARRHOEA [None]
  - SYNCOPE [None]
  - HYPOTENSION [None]
